FAERS Safety Report 9106123 (Version 1)
Quarter: 2013Q1

REPORT INFORMATION
  Report Type: Spontaneous
  Country: US (occurrence: US)
  Receive Date: 20130221
  Receipt Date: 20130221
  Transmission Date: 20140127
  Serious: No
  Sender: FDA-Public Use
  Company Number: US-009507513-1302USA009986

PATIENT
  Sex: Male

DRUGS (2)
  1. CORICIDIN HBP COUGH AND COLD [Suspect]
     Indication: NASOPHARYNGITIS
     Dosage: UNK, UNKNOWN
     Route: 048
  2. WARFARIN [Concomitant]
     Indication: CARDIAC VALVE DISEASE
     Dosage: UNK, UNKNOWN

REACTIONS (1)
  - Coagulation time prolonged [Unknown]
